FAERS Safety Report 22286650 (Version 2)
Quarter: 2023Q2

REPORT INFORMATION
  Report Type: Spontaneous
  Country: CN (occurrence: CN)
  Receive Date: 20230505
  Receipt Date: 20230525
  Transmission Date: 20230722
  Serious: Yes (Other)
  Sender: FDA-Public Use
  Company Number: None

PATIENT
  Age: 45 Year
  Sex: Male
  Weight: 85 kg

DRUGS (8)
  1. ISONIAZID [Suspect]
     Active Substance: ISONIAZID
     Indication: Meningitis tuberculous
     Dosage: 800 MILLIGRAM, QD
     Route: 065
     Dates: start: 20211213, end: 20221227
  2. ISONIAZID [Suspect]
     Active Substance: ISONIAZID
     Dosage: 600 MILLIGRAM, QD, DOSE REDUCED
     Route: 065
     Dates: start: 20211228
  3. LINEZOLID [Suspect]
     Active Substance: LINEZOLID
     Indication: Meningitis tuberculous
     Dosage: 600 MILLIGRAM, BID (TWICE A DAY)
     Route: 065
     Dates: start: 20211213, end: 20211213
  4. LINEZOLID [Suspect]
     Active Substance: LINEZOLID
     Dosage: 600 MILLIGRAM, QD (TWO WEEKS AFTER TREATMENT INITIATION)
     Route: 065
     Dates: start: 20211228
  5. CLOFAZIMINE [Concomitant]
     Active Substance: CLOFAZIMINE
     Indication: Meningitis tuberculous
     Dosage: 100 MILLIGRAM, QD
     Route: 065
     Dates: start: 20211213
  6. CYCLOSERINE [Concomitant]
     Active Substance: CYCLOSERINE
     Indication: Meningitis tuberculous
     Dosage: 500 MILLIGRAM, QD
     Route: 065
     Dates: start: 20211213
  7. DEXAMETHASONE [Concomitant]
     Active Substance: DEXAMETHASONE
     Indication: Meningitis tuberculous
     Dosage: 10 MILLIGRAM, QD
     Route: 065
     Dates: start: 20211213
  8. PYRAZINAMIDE [Concomitant]
     Active Substance: PYRAZINAMIDE
     Indication: Meningitis tuberculous
     Dosage: 1500 MILLIGRAM, QD
     Route: 065
     Dates: start: 20211213

REACTIONS (3)
  - Toxicity to various agents [Recovered/Resolved]
  - Neuropathy peripheral [Recovered/Resolved]
  - Anaemia [Recovered/Resolved]

NARRATIVE: CASE EVENT DATE: 20220601
